FAERS Safety Report 8427716-4 (Version None)
Quarter: 2012Q2

REPORT INFORMATION
  Report Type: 
  Country: None (occurrence: None)
  Receive Date: 20120611
  Receipt Date: 20120531
  Transmission Date: 20120825
  Serious: Yes (Other)
  Sender: FDA-Public Use
  Company Number: US-ASTRAZENECA-2012SE36654

PATIENT
  Age: 72 Year
  Sex: Female
  Weight: 99.8 kg

DRUGS (2)
  1. CRESTOR [Suspect]
     Route: 048
  2. STEROIDS [Concomitant]

REACTIONS (7)
  - COUGH [None]
  - FATIGUE [None]
  - MALAISE [None]
  - LETHARGY [None]
  - ASTHMA [None]
  - INSOMNIA [None]
  - CEREBROVASCULAR ACCIDENT [None]
